FAERS Safety Report 11119568 (Version 1)
Quarter: 2015Q2

REPORT INFORMATION
  Report Type: Spontaneous
  Country: US (occurrence: None)
  Receive Date: 20150515
  Receipt Date: 20150515
  Transmission Date: 20150821
  Serious: Yes (Disabling, Other)
  Sender: FDA-Public Use
  Company Number: None

PATIENT
  Age: 60 Year
  Sex: Female
  Weight: 74.84 kg

DRUGS (17)
  1. TRAVATAN Z [Concomitant]
     Active Substance: TRAVOPROST
  2. ASPIRIN. [Concomitant]
     Active Substance: ASPIRIN
  3. SYSTANE (HYPROMELLOSE 2910 (4000 MPA.S)) [Concomitant]
     Active Substance: HYPROMELLOSE 2910 (4000 MPA.S)
  4. PROPANOLOL [Concomitant]
     Active Substance: PROPRANOLOL HYDROCHLORIDE
  5. ALTACE [Concomitant]
     Active Substance: RAMIPRIL
  6. VITAMIN B COMPLEX [Concomitant]
     Active Substance: CYANOCOBALAMIN\DEXPANTHENOL\NIACINAMIDE\PYRIDOXINE HYDROCHLORIDE\RIBOFLAVIN 5^-PHOSPHATE SODIUM\THIAMINE HYDROCHLORIDE\VITAMIN B COMPLEX
  7. ALTACE [Suspect]
     Active Substance: RAMIPRIL
     Indication: HYPERTENSION
     Dosage: 1 CAPSULE 1X A DAY BY MOUTH?
     Route: 048
     Dates: start: 201312
  8. ABILIFY [Concomitant]
     Active Substance: ARIPIPRAZOLE
  9. TIZANIDINE (TIZANIDINE) [Concomitant]
     Active Substance: TIZANIDINE
  10. ATORVASTATIN [Concomitant]
     Active Substance: ATORVASTATIN
  11. SALINE MIST [Concomitant]
     Active Substance: SODIUM CHLORIDE
  12. AMMONIUM LACTATE. [Concomitant]
     Active Substance: AMMONIUM LACTATE
  13. HERBAL TEAS [Concomitant]
     Active Substance: HERBALS
  14. MELATONIN [Concomitant]
     Active Substance: MELATONIN
  15. TRIAMCINOLONE ACETONIDE. [Concomitant]
     Active Substance: TRIAMCINOLONE ACETONIDE
  16. VITAMIN A [Concomitant]
     Active Substance: VITAMIN A
  17. OMEGA 3 [Concomitant]
     Active Substance: OMEGA-3 FATTY ACIDS

REACTIONS (5)
  - Chromaturia [None]
  - Flatulence [None]
  - Urine odour abnormal [None]
  - Abdominal distension [None]
  - Blood pressure increased [None]

NARRATIVE: CASE EVENT DATE: 20150509
